FAERS Safety Report 17256735 (Version 1)
Quarter: 2020Q1

REPORT INFORMATION
  Report Type: Spontaneous
  Country: US (occurrence: US)
  Receive Date: 20200109
  Receipt Date: 20200109
  Transmission Date: 20200409
  Serious: Yes (Hospitalization)
  Sender: FDA-Public Use
  Company Number: None

PATIENT
  Age: 87 Year
  Sex: Male
  Weight: 76.5 kg

DRUGS (1)
  1. LEVETIRACETAM 750 MG TABLETS (GENERIC KEPPRA) [Suspect]
     Active Substance: LEVETIRACETAM
     Indication: SEIZURE
     Dosage: ?          QUANTITY:1 TABLET(S);?
     Route: 048

REACTIONS (2)
  - Muscular weakness [None]
  - Gait disturbance [None]

NARRATIVE: CASE EVENT DATE: 20191225
